FAERS Safety Report 7623425-X (Version None)
Quarter: 2011Q3

REPORT INFORMATION
  Report Type: 
  Country: None (occurrence: None)
  Receive Date: 20110720
  Receipt Date: 20110705
  Transmission Date: 20111222
  Serious: Yes (Hospitalization)
  Sender: FDA-Public Use
  Company Number: NL-SANOFI-AVENTIS-2011SA044113

PATIENT
  Age: 69 Year
  Sex: Female
  Weight: 78 kg

DRUGS (11)
  1. CLOPIDOGREL [Concomitant]
     Route: 065
  2. ACENOCOUMAROL [Concomitant]
     Route: 065
  3. ROSUVASTATIN [Concomitant]
     Route: 065
  4. DRONEDARONE HCL [Suspect]
     Indication: ATRIAL FIBRILLATION
     Route: 048
     Dates: start: 20110415
  5. METOPROLOL TARTRATE [Concomitant]
     Route: 065
  6. AMOXICILLIN AND CLAVULANATE POTASSIUM [Concomitant]
     Route: 065
     Dates: start: 20110509, end: 20110519
  7. DOXAZOSIN MESYLATE [Concomitant]
     Route: 065
     Dates: end: 20110518
  8. IRBESARTAN [Concomitant]
     Route: 065
  9. BUMETANIDE [Concomitant]
     Route: 065
     Dates: start: 20110504, end: 20110518
  10. BUMETANIDE [Concomitant]
     Route: 065
  11. AMLODIPINE [Concomitant]
     Route: 065
     Dates: start: 20110510, end: 20110518

REACTIONS (1)
  - CARDIAC FAILURE [None]
